FAERS Safety Report 8972436 (Version 1)
Quarter: 2012Q4

REPORT INFORMATION
  Report Type: Spontaneous
  Country: US (occurrence: None)
  Receive Date: 20121217
  Receipt Date: 20121217
  Transmission Date: 20130627
  Serious: Yes (Other)
  Sender: FDA-Public Use
  Company Number: None

PATIENT
  Age: 29 Year
  Sex: Female
  Weight: 68.04 kg

DRUGS (1)
  1. PROZAC [Suspect]
     Indication: DEPRESSION
     Route: 048
     Dates: start: 19990101, end: 20050701

REACTIONS (10)
  - Maternal drugs affecting foetus [None]
  - Food allergy [None]
  - Multiple allergies [None]
  - Eczema [None]
  - Asthma [None]
  - Infection [None]
  - Gastrointestinal disorder [None]
  - Gastrooesophageal reflux disease [None]
  - Eosinophilic oesophagitis [None]
  - Attention deficit/hyperactivity disorder [None]
